FAERS Safety Report 24181013 (Version 1)
Quarter: 2024Q3

REPORT INFORMATION
  Report Type: Spontaneous
  Country: US (occurrence: US)
  Receive Date: 20240806
  Receipt Date: 20240806
  Transmission Date: 20241016
  Serious: No
  Sender: AMGEN
  Company Number: US-AMGEN-USASP2024153874

PATIENT
  Age: 62 Year
  Sex: Female
  Weight: 49.887 kg

DRUGS (3)
  1. REPATHA [Suspect]
     Active Substance: EVOLOCUMAB
     Indication: Blood cholesterol increased
     Dosage: 2X MONTH
     Route: 065
  2. REPATHA [Suspect]
     Active Substance: EVOLOCUMAB
     Dosage: UNK, QMO (IX MONTH)
     Route: 065
  3. LEQVIO [Concomitant]
     Active Substance: INCLISIRAN SODIUM
     Route: 065

REACTIONS (2)
  - Blood cholesterol increased [Unknown]
  - Off label use [Unknown]
